FAERS Safety Report 21948603 (Version 1)
Quarter: 2023Q1

REPORT INFORMATION
  Report Type: Spontaneous
  Country: US (occurrence: US)
  Receive Date: 20230203
  Receipt Date: 20230203
  Transmission Date: 20230417
  Serious: No
  Sender: FDA-Public Use
  Company Number: US-ORPHANEU-2020001899

PATIENT

DRUGS (1)
  1. SIGNIFOR LAR [Suspect]
     Active Substance: PASIREOTIDE PAMOATE
     Indication: Pituitary-dependent Cushing^s syndrome
     Dosage: 20 MILLIGRAM, EVERY 28 DAYS
     Dates: start: 202004

REACTIONS (3)
  - Alopecia [Unknown]
  - Contusion [None]
  - Blood glucose increased [None]

NARRATIVE: CASE EVENT DATE: 20200101
